FAERS Safety Report 8153167-6 (Version None)
Quarter: 2012Q1

REPORT INFORMATION
  Report Type: 
  Country: None (occurrence: None)
  Receive Date: 20120221
  Receipt Date: 20120214
  Transmission Date: 20120608
  Serious: Yes (Death, Other)
  Sender: FDA-Public Use
  Company Number: US-CELGENEUS-163-21880-12010273

PATIENT
  Sex: Female

DRUGS (10)
  1. COUMADIN [Concomitant]
     Route: 065
  2. BUPROPION HCL [Concomitant]
     Route: 065
  3. FUROSEMIDE [Concomitant]
     Route: 065
  4. SIMVASTATIN [Concomitant]
     Route: 065
  5. IBUPROFEN [Concomitant]
     Route: 065
  6. DIGOXIN [Concomitant]
     Indication: ATRIAL FIBRILLATION
     Dosage: .125
     Route: 065
  7. FOSAMAX [Concomitant]
     Route: 065
  8. METOPROLOL TARTRATE [Concomitant]
     Route: 065
  9. REVLIMID [Suspect]
     Indication: MULTIPLE MYELOMA
     Dosage: 10 MILLIGRAM
     Route: 048
     Dates: start: 20100812, end: 20111201
  10. LISINOPRIL [Concomitant]
     Route: 065

REACTIONS (2)
  - PULMONARY EMBOLISM [None]
  - CARDIAC FAILURE CONGESTIVE [None]
